FAERS Safety Report 10659864 (Version 1)
Quarter: 2014Q4

REPORT INFORMATION
  Report Type: Spontaneous
  Country: US (occurrence: US)
  Receive Date: 20141217
  Receipt Date: 20141217
  Transmission Date: 20150529
  Serious: No
  Sender: FDA-Public Use
  Company Number: US-GLAXOSMITHKLINE-A1079085A

PATIENT

DRUGS (1)
  1. VOTRIENT [Suspect]
     Active Substance: PAZOPANIB HYDROCHLORIDE
     Indication: RENAL CANCER
     Dosage: 200 MG AT 4 TABLETS (800 MG) DAILY
     Route: 048
     Dates: start: 20140311, end: 20140609

REACTIONS (6)
  - Rash [Unknown]
  - Alopecia [Unknown]
  - Dysgeusia [Unknown]
  - Nausea [Unknown]
  - Skin discolouration [Unknown]
  - Vomiting [Unknown]

NARRATIVE: CASE EVENT DATE: 201404
